FAERS Safety Report 19556924 (Version 1)
Quarter: 2021Q3

REPORT INFORMATION
  Report Type: Spontaneous
  Country: NL (occurrence: NL)
  Receive Date: 20210714
  Receipt Date: 20210714
  Transmission Date: 20211014
  Serious: Yes (Other)
  Sender: FDA-Public Use
  Company Number: NL-MYLANLABS-2021M1041872

PATIENT
  Age: 74 Year
  Sex: Female
  Weight: 83 kg

DRUGS (5)
  1. AMIODARONE [Suspect]
     Active Substance: AMIODARONE
     Indication: VENTRICULAR TACHYCARDIA
     Dosage: 200 MILLIGRAM, QD
     Dates: start: 20210218
  2. CRESTOR [Concomitant]
     Active Substance: ROSUVASTATIN CALCIUM
     Dosage: TABLET, 5 MG (MILLIGRAM)
  3. OMEPRAZOL                          /00661201/ [Concomitant]
     Active Substance: OMEPRAZOLE
     Dosage: MAAGSAPRESISTENTE CAPSULE, 20 MG (MILLIGRAM)
  4. GLUCIENT [Concomitant]
     Active Substance: METFORMIN HYDROCHLORIDE
     Dosage: TABLET MET GEREGULEERDE AFGIFTE, 500 MG (MILLIGRAM)
  5. ELIQUIS [Concomitant]
     Active Substance: APIXABAN
     Dosage: TABLET, 5 MG (MILLIGRAM)

REACTIONS (3)
  - Alopecia [Recovering/Resolving]
  - Hypothyroidism [Recovering/Resolving]
  - Decreased appetite [Recovering/Resolving]

NARRATIVE: CASE EVENT DATE: 20210409
